FAERS Safety Report 8042107-6 (Version None)
Quarter: 2012Q1

REPORT INFORMATION
  Report Type: 
  Country: None (occurrence: None)
  Receive Date: 20120112
  Receipt Date: 20120109
  Transmission Date: 20120608
  Serious: Yes (Other)
  Sender: FDA-Public Use
  Company Number: US-AMGEN-USASP2011061440

PATIENT
  Age: 43 Year
  Sex: Female

DRUGS (18)
  1. IBUPROFEN [Concomitant]
     Dosage: 800 MG, PRN
     Route: 048
  2. ZINC [Concomitant]
     Dosage: 50 MG, QD
  3. IRON [Concomitant]
     Dosage: UNK UNK, QD
  4. NEURONTIN [Concomitant]
     Dosage: 300 MG, PRN
  5. VITAMIN D2 [Concomitant]
     Dosage: 50000 IU, QWK
     Route: 048
  6. DIOVAN [Concomitant]
     Dosage: 160 MG, QD
     Route: 048
  7. PRILOSEC [Concomitant]
     Dosage: 20 MG, QD
  8. PROZAC [Concomitant]
     Dosage: 40 MG, QD
     Route: 048
  9. BENADRYL [Concomitant]
     Dosage: 25 MG, QD
  10. METFORMIN HCL [Concomitant]
     Dosage: 1000 MG, BID
     Route: 048
  11. SANCTURA [Concomitant]
     Dosage: 60 MG, QD
     Route: 048
  12. MEDROL [Concomitant]
     Dosage: 4 MG, UNK
     Route: 048
  13. AMBIEN [Concomitant]
     Dosage: 10 MG, PRN
     Route: 048
  14. ARAVA [Concomitant]
     Dosage: 10 MG, QD
     Route: 048
  15. TRAMADOL HCL [Concomitant]
     Indication: PAIN
     Dosage: 50 MG, PRN
     Route: 048
  16. FOLIC ACID [Concomitant]
     Dosage: 1 MG, QD
     Route: 048
  17. ENBREL [Suspect]
     Indication: RHEUMATOID ARTHRITIS
     Dosage: 50 MG, QWK
     Route: 058
     Dates: start: 20110814, end: 20111015
  18. ARMODAFINIL [Concomitant]
     Dosage: 150 MG, UNK
     Route: 048

REACTIONS (2)
  - PARAESTHESIA [None]
  - BURNING SENSATION [None]
